FAERS Safety Report 21466532 (Version 1)
Quarter: 2022Q4

REPORT INFORMATION
  Report Type: Spontaneous
  Country: US (occurrence: None)
  Receive Date: 20221014
  Receipt Date: 20221014
  Transmission Date: 20230113
  Serious: No
  Sender: FDA-Public Use
  Company Number: None

PATIENT
  Age: 30 Year
  Sex: Female

DRUGS (1)
  1. AMBRISENTAN [Suspect]
     Active Substance: AMBRISENTAN
     Indication: Pulmonary hypertension
     Dosage: 10MG QD ORAL
     Route: 048
     Dates: start: 20220719

REACTIONS (5)
  - Chest pain [None]
  - Back pain [None]
  - Peripheral swelling [None]
  - Dyspnoea [None]
  - Infusion site pain [None]

NARRATIVE: CASE EVENT DATE: 20220924
